FAERS Safety Report 4437411-4 (Version None)
Quarter: 2004Q3

REPORT INFORMATION
  Report Type: 
  Country: None (occurrence: None)
  Receive Date: 20040830
  Receipt Date: 20040830
  Transmission Date: 20050211
  Serious: Yes (Hospitalization)
  Sender: FDA-Public Use
  Company Number: None

PATIENT
  Age: 47 Year
  Sex: Male

DRUGS (2)
  1. XANAX [Suspect]
  2. METHADONE HCL [Suspect]

REACTIONS (4)
  - DRUG ABUSER [None]
  - INTENTIONAL OVERDOSE [None]
  - SLUGGISHNESS [None]
  - SOMNOLENCE [None]
